FAERS Safety Report 7232896-2 (Version None)
Quarter: 2011Q1

REPORT INFORMATION
  Report Type: 
  Country: None (occurrence: None)
  Receive Date: 20110119
  Receipt Date: 20110107
  Transmission Date: 20110831
  Serious: Yes (Other)
  Sender: FDA-Public Use
  Company Number: PHHY2010CA45736

PATIENT
  Sex: Female

DRUGS (9)
  1. ELMIRON [Concomitant]
     Dosage: 100 MG
  2. ACLASTA [Suspect]
     Indication: OSTEOPOROSIS
     Dosage: 5 MG/100 ML, ONCE A YEAR
     Route: 042
     Dates: start: 20090630, end: 20100713
  3. CRESTOR [Concomitant]
     Dosage: 10 MG
  4. CLONAZEPAM [Concomitant]
     Dosage: 2 MG
  5. CYMBALTA [Concomitant]
     Dosage: 90 MG
  6. NEXIUM [Concomitant]
     Dosage: 40 MG
  7. OLANZAPINE [Concomitant]
     Dosage: 5 MG
  8. VITAMIN D [Concomitant]
     Dosage: ONCE A WEEK
  9. AMITRIPTYLINE [Concomitant]
     Dosage: 50 MG

REACTIONS (4)
  - PAIN [None]
  - FIBROMYALGIA [None]
  - INSOMNIA [None]
  - PYREXIA [None]
